FAERS Safety Report 5874700-0 (Version None)
Quarter: 2008Q3

REPORT INFORMATION
  Report Type: 
  Country: None (occurrence: None)
  Receive Date: 20080903
  Receipt Date: 20080825
  Transmission Date: 20090109
  Serious: Yes (Hospitalization, Other)
  Sender: FDA-Public Use
  Company Number: 2008-01066

PATIENT
  Age: 59 Year
  Sex: Female
  Weight: 45 kg

DRUGS (14)
  1. VELCADE [Suspect]
     Indication: MULTIPLE MYELOMA
     Dosage: 1.9 MG, INTRAVENOUS, 1.8 MG, INTRAVENOUS
     Route: 042
     Dates: start: 20080219, end: 20080228
  2. VELCADE [Suspect]
     Indication: MULTIPLE MYELOMA
     Dosage: 1.9 MG, INTRAVENOUS, 1.8 MG, INTRAVENOUS
     Route: 042
     Dates: start: 20080310, end: 20080320
  3. AMOXAPINE [Concomitant]
  4. OXYCONTIN [Concomitant]
  5. MAG-LAX (MAGNESIUM HYDROXIDE, PARAFFIN, LIQUID) [Concomitant]
  6. YODEL (SENNA) [Concomitant]
  7. LASIX [Concomitant]
  8. NAUZELIN (DOMPERIDONE) [Concomitant]
  9. GABAPENTIN [Concomitant]
  10. NEUROTROPIN (ORGAN LYSATE, STANDARDIZED) [Concomitant]
  11. CYTOTEC [Concomitant]
  12. ZYRTEC [Concomitant]
  13. FLUMARIN (FLOMOXEF SODIUM) [Concomitant]
  14. OXYGEN (OXYGEN) [Concomitant]

REACTIONS (13)
  - ARTHRALGIA [None]
  - BLOOD ALKALINE PHOSPHATASE INCREASED [None]
  - BLOOD LACTATE DEHYDROGENASE INCREASED [None]
  - CARDIAC FAILURE CONGESTIVE [None]
  - DISEASE RECURRENCE [None]
  - GASTRITIS [None]
  - HERPES ZOSTER [None]
  - IMMUNODEFICIENCY [None]
  - INFECTION [None]
  - INTERSTITIAL LUNG DISEASE [None]
  - NEUROPATHY PERIPHERAL [None]
  - PAIN [None]
  - THROMBOCYTOPENIA [None]
